FAERS Safety Report 23216920 (Version 2)
Quarter: 2023Q4

REPORT INFORMATION
  Report Type: Spontaneous
  Country: JP (occurrence: JP)
  Receive Date: 20231122
  Receipt Date: 20231207
  Transmission Date: 20240109
  Serious: Yes (Other)
  Sender: FDA-Public Use
  Company Number: JP-BRISTOL-MYERS SQUIBB COMPANY-2023-165795

PATIENT
  Age: 39 Year
  Sex: Female

DRUGS (1)
  1. TRIAMCINOLONE ACETONIDE [Suspect]
     Active Substance: TRIAMCINOLONE ACETONIDE
     Indication: Pain in extremity

REACTIONS (4)
  - Pain in extremity [Recovered/Resolved]
  - Articular calcification [Unknown]
  - Periarthritis calcarea [Unknown]
  - Peripheral swelling [Unknown]
